FAERS Safety Report 10024655 (Version 1)
Quarter: 2014Q1

REPORT INFORMATION
  Report Type: Spontaneous
  Country: US (occurrence: US)
  Receive Date: 20140320
  Receipt Date: 20140320
  Transmission Date: 20141002
  Serious: No
  Sender: FDA-Public Use
  Company Number: US-TEVA-470029USA

PATIENT
  Age: 26 Year
  Sex: Female
  Weight: 128.03 kg

DRUGS (1)
  1. PARAGARD 380A [Suspect]
     Indication: CONTRACEPTION
     Route: 015
     Dates: start: 20140115, end: 20140314

REACTIONS (3)
  - Vaginal haemorrhage [Unknown]
  - Abdominal pain [Unknown]
  - Device expulsion [Recovered/Resolved]
